FAERS Safety Report 8945385 (Version 1)
Quarter: 2012Q4

REPORT INFORMATION
  Report Type: 
  Country: US (occurrence: US)
  Receive Date: 20121205
  Receipt Date: 20121205
  Transmission Date: 20130627
  Serious: Yes (Other)
  Sender: FDA-Public Use
  Company Number: US-PFIZER INC-2012301767

PATIENT

DRUGS (1)
  1. DETROL LA [Suspect]
     Dosage: 4 mg, 1x/day
     Dates: start: 20120814

REACTIONS (2)
  - Urinary tract infection [Unknown]
  - Blood urine present [Unknown]
